FAERS Safety Report 20967582 (Version 6)
Quarter: 2023Q2

REPORT INFORMATION
  Report Type: Spontaneous
  Country: US (occurrence: US)
  Receive Date: 20220616
  Receipt Date: 20230511
  Transmission Date: 20230722
  Serious: No
  Sender: FDA-Public Use
  Company Number: US-PFIZER INC-2021387403

PATIENT
  Age: 28 Year
  Sex: Female

DRUGS (2)
  1. XELJANZ [Suspect]
     Active Substance: TOFACITINIB CITRATE
     Indication: Rheumatoid arthritis
     Dosage: 10 MG
  2. XELJANZ [Suspect]
     Active Substance: TOFACITINIB CITRATE
     Dosage: 10MG TABLET, ONE AND A HALF A TABLET BY MOUTH TWICE A DAY
     Route: 048
     Dates: start: 20220823

REACTIONS (3)
  - Off label use [Unknown]
  - Gait inability [Unknown]
  - Loss of personal independence in daily activities [Unknown]
